FAERS Safety Report 5523997-5 (Version None)
Quarter: 2007Q4

REPORT INFORMATION
  Report Type: 
  Country: None (occurrence: None)
  Receive Date: 20071121
  Receipt Date: 20071116
  Transmission Date: 20080405
  Serious: Yes (Other)
  Sender: FDA-Public Use
  Company Number: CH-BRISTOL-MYERS SQUIBB COMPANY-13339247

PATIENT
  Age: 24 Hour
  Sex: Male
  Weight: 3 kg

DRUGS (1)
  1. ABILIFY [Suspect]
     Indication: ACUTE PSYCHOSIS
     Route: 064
     Dates: start: 20051201

REACTIONS (3)
  - PREGNANCY [None]
  - PYELOCALIECTASIS [None]
  - RENAL DISORDER [None]
